FAERS Safety Report 21114247 (Version 6)
Quarter: 2022Q4

REPORT INFORMATION
  Report Type: Report from Study
  Country: ES (occurrence: ES)
  Receive Date: 20220721
  Receipt Date: 20221213
  Transmission Date: 20230113
  Serious: Yes (Death, Other)
  Sender: FDA-Public Use
  Company Number: ES-TAKEDA-2022TUS049194

PATIENT
  Age: 8 Year
  Sex: Male

DRUGS (19)
  1. TEDUGLUTIDE [Suspect]
     Active Substance: TEDUGLUTIDE
     Indication: Short-bowel syndrome
     Dosage: 0.6 MILLIGRAM, QD
     Route: 042
     Dates: start: 201710, end: 201811
  2. TEDUGLUTIDE [Suspect]
     Active Substance: TEDUGLUTIDE
     Indication: Short-bowel syndrome
     Dosage: 0.6 MILLIGRAM, QD
     Route: 042
     Dates: start: 201710, end: 201811
  3. TEDUGLUTIDE [Suspect]
     Active Substance: TEDUGLUTIDE
     Indication: Short-bowel syndrome
     Dosage: 0.6 MILLIGRAM, QD
     Route: 042
     Dates: start: 201710, end: 201811
  4. TEDUGLUTIDE [Suspect]
     Active Substance: TEDUGLUTIDE
     Indication: Short-bowel syndrome
     Dosage: 0.6 MILLIGRAM, QD
     Route: 042
     Dates: start: 201710, end: 201811
  5. TEDUGLUTIDE [Suspect]
     Active Substance: TEDUGLUTIDE
     Dosage: 0.8 MILLIGRAM, QD
     Route: 042
     Dates: start: 20201214, end: 20211213
  6. TEDUGLUTIDE [Suspect]
     Active Substance: TEDUGLUTIDE
     Dosage: 0.8 MILLIGRAM, QD
     Route: 042
     Dates: start: 20201214, end: 20211213
  7. TEDUGLUTIDE [Suspect]
     Active Substance: TEDUGLUTIDE
     Dosage: 0.8 MILLIGRAM, QD
     Route: 042
     Dates: start: 20201214, end: 20211213
  8. TEDUGLUTIDE [Suspect]
     Active Substance: TEDUGLUTIDE
     Dosage: 0.8 MILLIGRAM, QD
     Route: 042
     Dates: start: 20201214, end: 20211213
  9. TEDUGLUTIDE [Suspect]
     Active Substance: TEDUGLUTIDE
     Dosage: 0.9 MILLIGRAM, QD
     Route: 042
     Dates: start: 20211213
  10. TEDUGLUTIDE [Suspect]
     Active Substance: TEDUGLUTIDE
     Dosage: 0.9 MILLIGRAM, QD
     Route: 042
     Dates: start: 20211213
  11. TEDUGLUTIDE [Suspect]
     Active Substance: TEDUGLUTIDE
     Dosage: 0.9 MILLIGRAM, QD
     Route: 042
     Dates: start: 20211213
  12. TEDUGLUTIDE [Suspect]
     Active Substance: TEDUGLUTIDE
     Dosage: 0.9 MILLIGRAM, QD
     Route: 042
     Dates: start: 20211213
  13. MELATONIN [Concomitant]
     Active Substance: MELATONIN
     Indication: Insomnia
     Dosage: 4 GTT DROPS, QD
     Route: 048
     Dates: start: 20200913
  14. FERPLEX [Concomitant]
     Indication: Iron deficiency
     Dosage: 40 MILLIGRAM, QD
     Route: 048
     Dates: start: 20211213, end: 20220316
  15. VITAMIN D3 [Concomitant]
     Active Substance: CHOLECALCIFEROL
     Indication: Vitamin D deficiency
     Dosage: 1600 INTERNATIONAL UNIT, QD
     Route: 048
     Dates: start: 20220316
  16. RIFAXIMIN [Concomitant]
     Active Substance: RIFAXIMIN
     Indication: Prophylaxis
     Dosage: 100 MILLIGRAM, BID
     Route: 048
     Dates: start: 20201002, end: 20220316
  17. AMLODIPINE [Concomitant]
     Active Substance: AMLODIPINE BESYLATE
     Indication: Renal disorder
     Dosage: 1 MILLIGRAM, QD
     Route: 048
     Dates: end: 20200704
  18. VITAMIN K [Concomitant]
     Active Substance: PHYTONADIONE
     Indication: Haemorrhage prophylaxis
     Dosage: 5 MILLIGRAM, QD
     Route: 042
     Dates: start: 20200612, end: 20211213
  19. URSODIOL [Concomitant]
     Active Substance: URSODIOL
     Indication: Liver disorder
     Dosage: 6 MILLILITER, TID
     Route: 048
     Dates: start: 20200612

REACTIONS (1)
  - Sudden death [Fatal]

NARRATIVE: CASE EVENT DATE: 20220718
